FAERS Safety Report 5713044-4 (Version None)
Quarter: 2008Q2

REPORT INFORMATION
  Report Type: 
  Country: None (occurrence: None)
  Receive Date: 20080418
  Receipt Date: 20080409
  Transmission Date: 20081010
  Serious: Yes (Death, Hospitalization)
  Sender: FDA-Public Use
  Company Number: 2008AL002181

PATIENT
  Age: 53 Year
  Sex: Male

DRUGS (10)
  1. ACETAMINOPHEN [Suspect]
     Indication: ANALGESIA
  2. DICLOFENAC SODIUM [Suspect]
     Indication: ANALGESIA
  3. AMOXICILLIN/ CLAVULINIC ACID [Concomitant]
  4. GENTAMICIN [Concomitant]
  5. METRONIDAZOLE HCL [Concomitant]
  6. LEVOFLOXACIN [Concomitant]
  7. VANCOMYCIN [Concomitant]
  8. OMEPRAZOLE [Concomitant]
  9. METOCLOPRAMIDE [Concomitant]
  10. AUGMENTIN '125' [Concomitant]

REACTIONS (10)
  - ANION GAP INCREASED [None]
  - BLOOD ALBUMIN INCREASED [None]
  - BLOOD ALKALINE PHOSPHATASE INCREASED [None]
  - BLOOD CHLORIDE INCREASED [None]
  - BLOOD SODIUM INCREASED [None]
  - DISORIENTATION [None]
  - GENERAL PHYSICAL HEALTH DETERIORATION [None]
  - METABOLIC ACIDOSIS [None]
  - MYOCARDIAL INFARCTION [None]
  - URINE ANALYSIS ABNORMAL [None]
